FAERS Safety Report 6509559-1 (Version None)
Quarter: 2009Q4

REPORT INFORMATION
  Report Type: 
  Country: None (occurrence: None)
  Receive Date: 20091222
  Receipt Date: 20091218
  Transmission Date: 20100525
  Serious: Yes (Hospitalization)
  Sender: FDA-Public Use
  Company Number: FR-WYE-G05186009

PATIENT
  Sex: Female
  Weight: 50 kg

DRUGS (1)
  1. RHINADVIL [Suspect]
     Dosage: 3 TABLETS TOTAL DAILY
     Route: 048
     Dates: start: 20090801, end: 20090801

REACTIONS (1)
  - ANAEMIA [None]
